FAERS Safety Report 19803393 (Version 1)
Quarter: 2021Q3

REPORT INFORMATION
  Report Type: Spontaneous
  Country: US (occurrence: US)
  Receive Date: 20210902
  Receipt Date: 20210902
  Transmission Date: 20211014
  Serious: No
  Sender: FDA-Public Use
  Company Number: None

PATIENT
  Age: 38 Year
  Sex: Female
  Weight: 65.77 kg

DRUGS (1)
  1. PREGABALIN 150 MG [Suspect]
     Active Substance: PREGABALIN
     Indication: FIBROMYALGIA
     Dates: start: 201907, end: 201908

REACTIONS (2)
  - Feeling abnormal [None]
  - Hypersensitivity [None]

NARRATIVE: CASE EVENT DATE: 201907
